FAERS Safety Report 5122115-5 (Version None)
Quarter: 2006Q4

REPORT INFORMATION
  Report Type: 
  Country: None (occurrence: None)
  Receive Date: 20061004
  Receipt Date: 20061004
  Transmission Date: 20070319
  Serious: Yes (Other)
  Sender: FDA-Public Use
  Company Number: None

PATIENT
  Sex: Male
  Weight: 77 kg

DRUGS (4)
  1. MIRTAZAPINE [Suspect]
     Indication: DEPRESSION
     Dosage: 15MG  QHS  PO
     Route: 048
     Dates: start: 20060901, end: 20061002
  2. DISULFIRAM [Concomitant]
  3. EC ASPIRING [Concomitant]
  4. M.V.I. [Concomitant]

REACTIONS (2)
  - PAINFUL ERECTION [None]
  - SPONTANEOUS PENILE ERECTION [None]
